FAERS Safety Report 4677639-1 (Version None)
Quarter: 2005Q2

REPORT INFORMATION
  Report Type: 
  Country: None (occurrence: None)
  Receive Date: 20050531
  Receipt Date: 20050524
  Transmission Date: 20051028
  Serious: Yes (Other)
  Sender: FDA-Public Use
  Company Number: BE-ROCHE-405652

PATIENT
  Age: 17 Year

DRUGS (4)
  1. PEGASYS [Suspect]
     Indication: HEPATITIS C
     Route: 058
     Dates: start: 20040618, end: 20050115
  2. PEGASYS [Suspect]
     Route: 058
     Dates: start: 20050115
  3. COPEGUS [Suspect]
     Indication: HEPATITIS C
     Route: 048
     Dates: start: 20040618, end: 20050115
  4. COPEGUS [Suspect]
     Dosage: DAILY.
     Route: 048
     Dates: start: 20050115

REACTIONS (1)
  - PULMONARY HYPERTENSION [None]
